FAERS Safety Report 16720073 (Version 1)
Quarter: 2019Q3

REPORT INFORMATION
  Report Type: Spontaneous
  Country: US (occurrence: US)
  Receive Date: 20190820
  Receipt Date: 20190820
  Transmission Date: 20191005
  Serious: No
  Sender: FDA-Public Use
  Company Number: US-PFIZER INC-2019353590

PATIENT
  Sex: Female

DRUGS (2)
  1. CLINDAMYCIN. [Suspect]
     Active Substance: CLINDAMYCIN
     Dosage: UNK
  2. CELEBREX [Suspect]
     Active Substance: CELECOXIB
     Dosage: UNK

REACTIONS (6)
  - Tooth fracture [Unknown]
  - Ear haemorrhage [Unknown]
  - Lymphadenopathy [Unknown]
  - Dysphagia [Unknown]
  - Limb discomfort [Unknown]
  - Tooth loss [Unknown]
